FAERS Safety Report 24769625 (Version 2)
Quarter: 2025Q1

REPORT INFORMATION
  Report Type: Report from Study
  Country: CA (occurrence: CA)
  Receive Date: 20241224
  Receipt Date: 20250113
  Transmission Date: 20250409
  Serious: Yes (Other)
  Sender: EMD SERONO INC
  Company Number: CA-Merck Healthcare KGaA-2024067403

PATIENT
  Sex: Female

DRUGS (4)
  1. MAVENCLAD [Suspect]
     Active Substance: CLADRIBINE
     Indication: Multiple sclerosis
     Dates: start: 20210315, end: 20210319
  2. MAVENCLAD [Suspect]
     Active Substance: CLADRIBINE
     Dates: start: 20210412, end: 20210416
  3. MAVENCLAD [Suspect]
     Active Substance: CLADRIBINE
     Dates: start: 20220315, end: 20220319
  4. MAVENCLAD [Suspect]
     Active Substance: CLADRIBINE
     Dates: start: 20220412, end: 20220416

REACTIONS (1)
  - Polycystic ovarian syndrome [Unknown]
